FAERS Safety Report 7159428-1 (Version None)
Quarter: 2010Q4

REPORT INFORMATION
  Report Type: 
  Country: None (occurrence: None)
  Receive Date: 20101214
  Receipt Date: 20100902
  Transmission Date: 20110411
  Serious: No
  Sender: FDA-Public Use
  Company Number: US-ASTRAZENECA-2010SE41491

PATIENT
  Age: 61 Year
  Sex: Female
  Weight: 59.9 kg

DRUGS (3)
  1. CRESTOR [Suspect]
     Indication: HYPERCHOLESTEROLAEMIA
     Route: 048
     Dates: start: 20100801, end: 20100801
  2. CRESTOR [Suspect]
     Route: 048
     Dates: start: 20100801, end: 20100801
  3. CRESTOR [Suspect]
     Route: 048
     Dates: start: 20100901

REACTIONS (2)
  - HEADACHE [None]
  - VIRAL INFECTION [None]
